FAERS Safety Report 8920611 (Version 3)
Quarter: 2013Q3

REPORT INFORMATION
  Report Type: Report from Study
  Country: MX (occurrence: MX)
  Receive Date: 20121122
  Receipt Date: 20130913
  Transmission Date: 20140515
  Serious: Yes (Other)
  Sender: FDA-Public Use
  Company Number: PHHY2011MX57601

PATIENT
  Age: 25 Year
  Sex: Male

DRUGS (8)
  1. TRILEPTAL [Suspect]
     Indication: EPILEPSY
     Dosage: 3 DF, QD
     Route: 048
     Dates: start: 20080704
  2. TRILEPTAL [Suspect]
     Dosage: 1 DF, QD
  3. TRIAM [Concomitant]
     Indication: EPILEPSY
     Dosage: 6 DF, UNK
     Dates: start: 2003
  4. TOPAMAX [Concomitant]
     Indication: EPILEPSY
     Dosage: 3 DF, UNK
     Dates: start: 2003
  5. BIPERIDEN [Concomitant]
     Indication: TREMOR
     Dosage: 1 DF, UNK
     Dates: start: 2003
  6. RIPERIDONE [Concomitant]
     Indication: CONDUCT DISORDER
     Dosage: 2 DF, UNK
     Dates: start: 2006
  7. HALDOL [Concomitant]
     Indication: CONDUCT DISORDER
     Dosage: 1 DF, EVERY 15 DAYS
     Dates: start: 2008
  8. BI EUGLUCON M [Concomitant]
     Indication: DIABETES MELLITUS
     Dosage: 1 DF, PER DAY
     Dates: start: 2009

REACTIONS (11)
  - Fall [Recovered/Resolved]
  - Mental retardation [Not Recovered/Not Resolved]
  - Convulsion [Recovered/Resolved]
  - Confusional state [Recovered/Resolved]
  - Fatigue [Recovered/Resolved]
  - Somnolence [Recovered/Resolved]
  - Face injury [Not Recovered/Not Resolved]
  - Feeling abnormal [Not Recovered/Not Resolved]
  - Communication disorder [Not Recovered/Not Resolved]
  - Weight increased [Unknown]
  - Epilepsy [Not Recovered/Not Resolved]
